FAERS Safety Report 7394013-8 (Version None)
Quarter: 2011Q2

REPORT INFORMATION
  Report Type: 
  Country: None (occurrence: None)
  Receive Date: 20110405
  Receipt Date: 20110324
  Transmission Date: 20111010
  Serious: Yes (Other)
  Sender: FDA-Public Use
  Company Number: US-JNJFOC-20110400449

PATIENT
  Age: 61 Year
  Sex: Female
  Weight: 58.97 kg

DRUGS (2)
  1. VITAMINS NOS [Concomitant]
     Indication: MEDICAL DIET
     Route: 065
  2. LISTERINE TOTAL CARE PLUS WHITENING [Suspect]
     Indication: DENTAL DISORDER PROPHYLAXIS
     Dosage: CAPFUL
     Route: 048

REACTIONS (2)
  - SKIN EXFOLIATION [None]
  - APPLICATION SITE BURN [None]
